FAERS Safety Report 17909627 (Version 3)
Quarter: 2020Q4

REPORT INFORMATION
  Report Type: Report from Study
  Country: DE (occurrence: DE)
  Receive Date: 20200617
  Receipt Date: 20201207
  Transmission Date: 20210113
  Serious: Yes (Other)
  Sender: FDA-Public Use
  Company Number: NVSC2020DE167229

PATIENT
  Sex: Female

DRUGS (4)
  1. ETORICOXIB. [Suspect]
     Active Substance: ETORICOXIB
     Indication: AXIAL SPONDYLOARTHRITIS
     Dosage: 60 MG
     Route: 065
     Dates: start: 20180701, end: 20190110
  2. COSENTYX [Suspect]
     Active Substance: SECUKINUMAB
     Indication: AXIAL SPONDYLOARTHRITIS
     Dosage: 300 MG, Q4W
     Route: 065
     Dates: start: 20180807
  3. IBUPROFEN. [Suspect]
     Active Substance: IBUPROFEN
     Indication: AXIAL SPONDYLOARTHRITIS
     Dosage: 600 MG, QW (1 DAY PER WEEK)
     Route: 065
     Dates: start: 20191014
  4. METHOTREXATE. [Suspect]
     Active Substance: METHOTREXATE
     Indication: AXIAL SPONDYLOARTHRITIS
     Dosage: 15 MG, QW
     Route: 065
     Dates: start: 20161101

REACTIONS (3)
  - Arthritis [Unknown]
  - Exposure during pregnancy [Recovered/Resolved]
  - Unwanted pregnancy [Recovered/Resolved]

NARRATIVE: CASE EVENT DATE: 20191115
